FAERS Safety Report 8204125-4 (Version None)
Quarter: 2012Q1

REPORT INFORMATION
  Report Type: 
  Country: None (occurrence: None)
  Receive Date: 20120309
  Receipt Date: 20120302
  Transmission Date: 20120608
  Serious: Yes (Hospitalization, Other)
  Sender: FDA-Public Use
  Company Number: 2011MA003912

PATIENT
  Sex: Female
  Weight: 99.7913 kg

DRUGS (46)
  1. SINEMET [Concomitant]
  2. DONNATAL [Concomitant]
  3. INDOCIN [Concomitant]
  4. ISORDIL [Concomitant]
  5. LOPRESSOR [Concomitant]
  6. SULFAMETHOXAZOLE AND TRIMETHOPRIM [Concomitant]
  7. TRANXENE [Concomitant]
  8. TRENTAL [Concomitant]
  9. VIOXX [Concomitant]
  10. ESTRADERM [Concomitant]
  11. LODINE [Concomitant]
  12. POTASSIUM CHLORIDE [Concomitant]
  13. LABETALOL HCL [Concomitant]
  14. REQUIP XL [Concomitant]
  15. ACTIFED [Concomitant]
  16. COLCHICINE [Concomitant]
  17. LEVAQUIN [Concomitant]
  18. VALIUM [Concomitant]
  19. VASERETIC [Concomitant]
  20. PHENERGAN [Concomitant]
  21. TYLOX [Concomitant]
  22. MACRODANTIN [Concomitant]
  23. CODEINE SULFATE [Concomitant]
  24. CECLOR [Concomitant]
  25. CELEBREX [Concomitant]
  26. FELDENE [Concomitant]
  27. METHYLDOPA [Concomitant]
  28. MYLANTA [Concomitant]
  29. PERCOCET [Concomitant]
  30. SEPTRA [Concomitant]
  31. TENORMIN [Concomitant]
  32. VALIUM [Concomitant]
  33. VIBRA-TABS [Concomitant]
  34. LOTREL [Concomitant]
  35. TIZANIDINE HCL [Concomitant]
  36. CALCIUM +D [Concomitant]
  37. ACETAMINOPHEN [Concomitant]
  38. XANAX [Concomitant]
  39. ENALAPRIL [Concomitant]
  40. DIMETANE [Concomitant]
  41. NITROFURANTOIN [Concomitant]
  42. PANCOF [Concomitant]
  43. KLONOPIN [Concomitant]
  44. METOCLOPRAMIDE HYDROCHLORIDE [Suspect]
     Indication: GASTROOESOPHAGEAL REFLUX DISEASE
     Dosage: 10 MG; QID; PO
     Route: 048
     Dates: start: 19880801, end: 20090701
  45. DARVOCET-N 50 [Concomitant]
  46. TYLENOL [Concomitant]

REACTIONS (42)
  - RESTLESS LEGS SYNDROME [None]
  - ECONOMIC PROBLEM [None]
  - UPPER RESPIRATORY TRACT INFECTION [None]
  - CAROTID BRUIT [None]
  - CEREBRAL SMALL VESSEL ISCHAEMIC DISEASE [None]
  - ABDOMINAL DISTENSION [None]
  - HOT FLUSH [None]
  - BURSITIS [None]
  - GASTROINTESTINAL TRACT ADENOMA [None]
  - TREMOR [None]
  - EMOTIONAL DISORDER [None]
  - NERVOUSNESS [None]
  - DIZZINESS [None]
  - CORONARY ARTERY DISEASE [None]
  - CERVICAL SPINAL STENOSIS [None]
  - TARDIVE DYSKINESIA [None]
  - DYSPEPSIA [None]
  - INTERVERTEBRAL DISC DEGENERATION [None]
  - INTERVERTEBRAL DISC PROTRUSION [None]
  - PARKINSON'S DISEASE [None]
  - MYALGIA [None]
  - INFLUENZA [None]
  - ANXIETY [None]
  - DRUG INEFFECTIVE [None]
  - DIARRHOEA [None]
  - PARKINSONISM [None]
  - COLONIC POLYP [None]
  - HEAD TITUBATION [None]
  - HYPERTENSION [None]
  - RHINITIS ALLERGIC [None]
  - GOUT [None]
  - ABDOMINAL PAIN UPPER [None]
  - DYSARTHRIA [None]
  - PROTRUSION TONGUE [None]
  - GASTROOESOPHAGEAL REFLUX DISEASE [None]
  - EXTRAPYRAMIDAL DISORDER [None]
  - DYSKINESIA [None]
  - ASTHENIA [None]
  - OSTEOARTHRITIS [None]
  - GASTROENTERITIS VIRAL [None]
  - ARTHRALGIA [None]
  - RECTAL HAEMORRHAGE [None]
